FAERS Safety Report 12762518 (Version 1)
Quarter: 2016Q3

REPORT INFORMATION
  Report Type: Report from Study
  Country: PK (occurrence: PK)
  Receive Date: 20160920
  Receipt Date: 20160920
  Transmission Date: 20161109
  Serious: Yes (Other)
  Sender: FDA-Public Use
  Company Number: PK-INCYTE CORPORATION-2016IN005892

PATIENT
  Age: 78 Year
  Sex: Female
  Weight: 41 kg

DRUGS (2)
  1. JAKAFI [Suspect]
     Active Substance: RUXOLITINIB
     Indication: PRIMARY MYELOFIBROSIS
     Dosage: 15 MG, BID
     Route: 048
     Dates: start: 20160718, end: 20160720
  2. JAKAFI [Suspect]
     Active Substance: RUXOLITINIB
     Dosage: 15 MG, QD
     Route: 048
     Dates: start: 20160822

REACTIONS (4)
  - Chest discomfort [Recovered/Resolved]
  - Infection [Unknown]
  - Diabetes mellitus [Unknown]
  - Cough [Unknown]

NARRATIVE: CASE EVENT DATE: 20160720
